FAERS Safety Report 17603277 (Version 1)
Quarter: 2020Q1

REPORT INFORMATION
  Report Type: Spontaneous
  Country: US (occurrence: US)
  Receive Date: 20200331
  Receipt Date: 20200331
  Transmission Date: 20200409
  Serious: Yes (Other)
  Sender: FDA-Public Use
  Company Number: US-DRREDDYS-USA/USA/20/0121273

PATIENT
  Age: 52 Year
  Sex: Male
  Weight: 103.5 kg

DRUGS (2)
  1. LISINOPRIL. [Concomitant]
     Active Substance: LISINOPRIL
     Indication: PRODUCT USED FOR UNKNOWN INDICATION
     Route: 048
  2. CIPROFLOXACIN. [Suspect]
     Active Substance: CIPROFLOXACIN
     Indication: INFECTION
     Route: 048
     Dates: start: 20190606, end: 20190608

REACTIONS (11)
  - Neuropathy peripheral [Unknown]
  - Feeling abnormal [Unknown]
  - Vitreous floaters [Unknown]
  - Pain in extremity [Unknown]
  - Crepitations [Unknown]
  - Muscle disorder [Unknown]
  - Tendon pain [Unknown]
  - Toxicity to various agents [Unknown]
  - Disturbance in attention [Unknown]
  - Memory impairment [Unknown]
  - Tendon injury [Unknown]
